FAERS Safety Report 20972377 (Version 1)
Quarter: 2022Q2

REPORT INFORMATION
  Report Type: Report from Study
  Country: CO (occurrence: CO)
  Receive Date: 20220617
  Receipt Date: 20220617
  Transmission Date: 20220721
  Serious: Yes (Other)
  Sender: FDA-Public Use
  Company Number: CO-ABBVIE-22K-036-4373300-00

PATIENT
  Age: 41 Year
  Sex: Male
  Weight: 64 kg

DRUGS (4)
  1. HUMIRA [Suspect]
     Active Substance: ADALIMUMAB
     Indication: Ankylosing spondylitis
     Route: 058
     Dates: start: 20190518, end: 2022
  2. HUMIRA [Suspect]
     Active Substance: ADALIMUMAB
     Route: 058
     Dates: start: 20220503
  3. CELECOXIB [Concomitant]
     Active Substance: CELECOXIB
     Indication: Ankylosing spondylitis
     Route: 048
  4. PREDNISOLONE [Concomitant]
     Active Substance: PREDNISOLONE
     Indication: Ankylosing spondylitis
     Route: 048

REACTIONS (8)
  - Arthropathy [Recovering/Resolving]
  - Joint effusion [Unknown]
  - Cyst [Recovered/Resolved]
  - Incorrect dose administered [Unknown]
  - Arthritis [Recovering/Resolving]
  - Arthralgia [Not Recovered/Not Resolved]
  - Neck pain [Not Recovered/Not Resolved]
  - Device issue [Unknown]

NARRATIVE: CASE EVENT DATE: 20220221
